FAERS Safety Report 16753058 (Version 1)
Quarter: 2019Q3

REPORT INFORMATION
  Report Type: Spontaneous
  Country: PT (occurrence: PT)
  Receive Date: 20190829
  Receipt Date: 20190829
  Transmission Date: 20191005
  Serious: Yes (Other)
  Sender: FDA-Public Use
  Company Number: PT-CELLTRION INC.-2019PT024105

PATIENT

DRUGS (1)
  1. RITUXIMAB (UNKNOWN) [Suspect]
     Active Substance: RITUXIMAB
     Indication: NEPHROTIC SYNDROME
     Dosage: 375 MG/M2, AT A ONE-WEEK INTERVAL
     Route: 042

REACTIONS (4)
  - Off label use [Unknown]
  - Nephrotic syndrome [Unknown]
  - Product use issue [Unknown]
  - Disease recurrence [Unknown]
